FAERS Safety Report 15817567 (Version 1)
Quarter: 2019Q1

REPORT INFORMATION
  Report Type: Spontaneous
  Country: US (occurrence: US)
  Receive Date: 20190113
  Receipt Date: 20190113
  Transmission Date: 20190417
  Serious: No
  Sender: FDA-Public Use
  Company Number: US-COOPERSURGICAL, INC.-US-2018CPS015652

PATIENT

DRUGS (1)
  1. PARAGARD T 380A [Suspect]
     Active Substance: COPPER
     Indication: CONTRACEPTION
     Dosage: UNK
     Route: 015
     Dates: start: 20170322

REACTIONS (4)
  - Device expulsion [Not Recovered/Not Resolved]
  - Menstrual disorder [Unknown]
  - Vaginal haemorrhage [Not Recovered/Not Resolved]
  - Menorrhagia [Unknown]

NARRATIVE: CASE EVENT DATE: 201711
